FAERS Safety Report 7862591-8 (Version None)
Quarter: 2011Q4

REPORT INFORMATION
  Report Type: 
  Country: None (occurrence: None)
  Receive Date: 20111025
  Receipt Date: 20111018
  Transmission Date: 20120403
  Serious: Yes (Death, Hospitalization)
  Sender: FDA-Public Use
  Company Number: DSA_47690_2011

PATIENT
  Sex: Female

DRUGS (1)
  1. XENAZINE [Suspect]
     Indication: HUNTINGTON'S DISEASE
     Dosage: 25 MG EACH MORNING, 1/2 TAB AT NOON, AND 1/2 TAB EACH EVENING ORAL
     Route: 048
     Dates: start: 20100201, end: 20110801

REACTIONS (2)
  - PYREXIA [None]
  - DISEASE RECURRENCE [None]
